FAERS Safety Report 7609131-6 (Version None)
Quarter: 2011Q3

REPORT INFORMATION
  Report Type: 
  Country: None (occurrence: None)
  Receive Date: 20110714
  Receipt Date: 20110708
  Transmission Date: 20111222
  Serious: Yes (Hospitalization, Other)
  Sender: FDA-Public Use
  Company Number: JP-JNJFOC-20110308567

PATIENT
  Sex: Female
  Weight: 23.13 kg

DRUGS (18)
  1. PYDOXAL [Concomitant]
     Indication: PROPHYLAXIS
     Route: 048
     Dates: start: 20091225
  2. CIPROFLOXACIN [Concomitant]
     Indication: INTERSTITIAL LUNG DISEASE
     Route: 042
     Dates: start: 20100308, end: 20100314
  3. DECADRON [Concomitant]
     Indication: PROPHYLAXIS
     Route: 042
     Dates: start: 20100212, end: 20100212
  4. KYTRIL [Concomitant]
     Indication: PROPHYLAXIS
     Route: 042
     Dates: start: 20100212, end: 20100212
  5. LAXOBERON [Concomitant]
     Indication: CONSTIPATION
     Route: 048
  6. FUNGUARD [Concomitant]
     Indication: INTERSTITIAL LUNG DISEASE
     Route: 042
     Dates: start: 20100310, end: 20100314
  7. SULFAMETHOXAZOLE [Concomitant]
     Indication: INTERSTITIAL LUNG DISEASE
     Route: 048
     Dates: start: 20100310, end: 20100330
  8. CONCENTRATED RED CELLS [Concomitant]
     Indication: ANAEMIA
     Dosage: DOSE- 4 LUX
     Route: 041
     Dates: start: 20100308, end: 20100308
  9. DOXORUBICIN HCL [Suspect]
     Route: 042
     Dates: start: 20100114, end: 20100114
  10. DOXORUBICIN HCL [Suspect]
     Indication: OVARIAN CANCER RECURRENT
     Route: 042
     Dates: start: 20091210, end: 20091210
  11. DOXORUBICIN HCL [Suspect]
     Route: 042
     Dates: start: 20100212, end: 20100212
  12. AZUNOL [Concomitant]
     Indication: PROPHYLAXIS
     Route: 049
     Dates: start: 20091210
  13. HEAVY MAGNESIUM OXIDE [Concomitant]
     Indication: CONSTIPATION
     Route: 048
  14. CEFTAZIDIME SODIUM [Concomitant]
     Indication: INTERSTITIAL LUNG DISEASE
     Route: 042
     Dates: start: 20100307, end: 20100308
  15. MAGNESIUM OXIDE [Concomitant]
     Indication: CONSTIPATION
     Route: 048
  16. DAI-KENCHU-TO [Concomitant]
     Indication: CONSTIPATION
     Route: 048
  17. HOCHU-EKKI-TO [Concomitant]
     Indication: OVARIAN CANCER RECURRENT
     Route: 048
  18. PREDNISOLONE [Concomitant]
     Indication: INTERSTITIAL LUNG DISEASE
     Route: 042
     Dates: start: 20100311, end: 20100315

REACTIONS (2)
  - ANAEMIA [None]
  - INTERSTITIAL LUNG DISEASE [None]
